FAERS Safety Report 8024938-1 (Version None)
Quarter: 2012Q1

REPORT INFORMATION
  Report Type: 
  Country: None (occurrence: None)
  Receive Date: 20120105
  Receipt Date: 20111222
  Transmission Date: 20120608
  Serious: Yes (Hospitalization)
  Sender: FDA-Public Use
  Company Number: PHHY2011FR114659

PATIENT

DRUGS (11)
  1. RIMACTANE [Suspect]
     Indication: OSTEITIS
     Dosage: 600 MG, EVERY TWO DAYS
     Route: 048
     Dates: start: 20110610, end: 20110616
  2. AMOXICILLIN TRIHYDRATE [Suspect]
     Dosage: 8 MG, QD
     Route: 048
     Dates: start: 20110605, end: 20110616
  3. IRBESARTAN AND HYDROCHLOROTHIAZIDE [Concomitant]
  4. ATORVASTATIN CALCIUM [Concomitant]
  5. NOVOLOG MIX 70/30 [Concomitant]
  6. AMOXICILLIN TRIHYDRATE [Suspect]
     Dosage: 4 MG, QD
     Route: 048
     Dates: start: 20110601, end: 20110605
  7. NICARDIPINE HCL [Concomitant]
  8. ACTRAPID HUMAN [Concomitant]
  9. NEXIUM [Concomitant]
  10. ASPIRIN [Concomitant]
  11. AMOXICILLIN TRIHYDRATE [Suspect]
     Indication: ERYSIPELAS
     Dosage: 4 G, QD
     Route: 042
     Dates: start: 20110528, end: 20110531

REACTIONS (3)
  - LIVER DISORDER [None]
  - RENAL FAILURE ACUTE [None]
  - AZOTAEMIA [None]
